FAERS Safety Report 5812950-X (Version None)
Quarter: 2008Q3

REPORT INFORMATION
  Report Type: 
  Country: None (occurrence: None)
  Receive Date: 20080717
  Receipt Date: 20070813
  Transmission Date: 20090109
  Serious: No
  Sender: FDA-Public Use
  Company Number: A0669382A

PATIENT
  Sex: Female

DRUGS (2)
  1. NICORETTE [Suspect]
  2. NICODERM CQ [Suspect]

REACTIONS (8)
  - ABDOMINAL DISCOMFORT [None]
  - APPLICATION SITE ERYTHEMA [None]
  - APPLICATION SITE RASH [None]
  - FORMICATION [None]
  - HYPERSENSITIVITY [None]
  - INTENTIONAL DRUG MISUSE [None]
  - PRURITUS [None]
  - RASH [None]
